FAERS Safety Report 25144751 (Version 1)
Quarter: 2025Q2

REPORT INFORMATION
  Report Type: Spontaneous
  Country: DE (occurrence: DE)
  Receive Date: 20250401
  Receipt Date: 20250401
  Transmission Date: 20250717
  Serious: Yes (Hospitalization, Other)
  Sender: AZURITY PHARMACEUTICALS
  Company Number: DE-AZURITY PHARMACEUTICALS, INC.-AZR202503-000923

PATIENT
  Age: 35 Year
  Sex: Female

DRUGS (7)
  1. TRIPTORELIN [Suspect]
     Active Substance: TRIPTORELIN
     Indication: Assisted reproductive technology
     Route: 065
  2. GONADOTROPIN-RELEASING HORMONES [Suspect]
     Active Substance: GONADORELIN
     Indication: Assisted reproductive technology
     Route: 065
     Dates: start: 20250115
  3. PROGESTERONE [Suspect]
     Active Substance: PROGESTERONE
     Indication: Assisted reproductive technology
     Route: 067
  4. GONADOTROPHIN, CHORIONIC [Suspect]
     Active Substance: GONADOTROPHIN, CHORIONIC
     Indication: Assisted reproductive technology
     Route: 065
  5. GONADOTROPHIN, CHORIONIC [Suspect]
     Active Substance: GONADOTROPHIN, CHORIONIC
     Route: 065
     Dates: start: 20250208
  6. GONADOTROPHIN, CHORIONIC [Suspect]
     Active Substance: GONADOTROPHIN, CHORIONIC
     Indication: Assisted reproductive technology
     Route: 065
     Dates: start: 20250130
  7. UROFOLLITROPIN [Suspect]
     Active Substance: UROFOLLITROPIN
     Indication: Product used for unknown indication
     Route: 065
     Dates: start: 20250130

REACTIONS (1)
  - Ovarian hyperstimulation syndrome [Recovered/Resolved]

NARRATIVE: CASE EVENT DATE: 20250216
